FAERS Safety Report 8378354-3 (Version None)
Quarter: 2012Q2

REPORT INFORMATION
  Report Type: 
  Country: None (occurrence: None)
  Receive Date: 20120522
  Receipt Date: 20120516
  Transmission Date: 20120825
  Serious: Yes (Death, Hospitalization)
  Sender: FDA-Public Use
  Company Number: US-ELI_LILLY_AND_COMPANY-US201205006187

PATIENT
  Sex: Male

DRUGS (1)
  1. HUMULIN N [Suspect]
     Indication: DIABETES MELLITUS
     Dosage: 5 U, UNK
     Dates: start: 19970101

REACTIONS (6)
  - MALAISE [None]
  - DEATH [None]
  - GALLBLADDER OPERATION [None]
  - HYPOPHAGIA [None]
  - GASTROINTESTINAL DISORDER [None]
  - CLOSTRIDIAL INFECTION [None]
